FAERS Safety Report 7549465-7 (Version None)
Quarter: 2011Q2

REPORT INFORMATION
  Report Type: 
  Country: None (occurrence: None)
  Receive Date: 20110615
  Receipt Date: 20050921
  Transmission Date: 20111010
  Serious: Yes (Hospitalization)
  Sender: FDA-Public Use
  Company Number: PHFR2005GB00852

PATIENT
  Sex: Male

DRUGS (3)
  1. CHLORDIAZEPOXIDE [Concomitant]
     Indication: ALCOHOL WITHDRAWAL SYNDROME
     Route: 065
  2. VALPROATE SODIUM [Concomitant]
     Route: 065
  3. CLOZAPINE [Suspect]
     Indication: SCHIZOPHRENIA
     Dosage: 300 MG, QD
     Route: 048
     Dates: start: 20010611, end: 20050209

REACTIONS (8)
  - ALANINE AMINOTRANSFERASE INCREASED [None]
  - BLOOD BILIRUBIN INCREASED [None]
  - ALCOHOLIC LIVER DISEASE [None]
  - GAMMA-GLUTAMYLTRANSFERASE INCREASED [None]
  - HEPATIC STEATOSIS [None]
  - JAUNDICE [None]
  - BACK PAIN [None]
  - HEPATITIS [None]
